FAERS Safety Report 4766654-5 (Version None)
Quarter: 2005Q3

REPORT INFORMATION
  Report Type: 
  Country: None (occurrence: None)
  Receive Date: 20050912
  Receipt Date: 20020509
  Transmission Date: 20060218
  Serious: Yes (Other)
  Sender: FDA-Public Use
  Company Number: GB-ABBOTT-02P-167-0192790-00

PATIENT
  Sex: Female

DRUGS (2)
  1. REDUCTIL 10MG [Suspect]
     Indication: OBESITY
     Route: 048
     Dates: start: 20011101, end: 20020410
  2. REDUCTIL 10MG [Suspect]
     Indication: WEIGHT CONTROL

REACTIONS (4)
  - IRRITABLE BOWEL SYNDROME [None]
  - MOOD SWINGS [None]
  - NAUSEA [None]
  - THERAPEUTIC RESPONSE UNEXPECTED [None]
